FAERS Safety Report 17184355 (Version 1)
Quarter: 2019Q4

REPORT INFORMATION
  Report Type: Spontaneous
  Country: US (occurrence: US)
  Receive Date: 20191220
  Receipt Date: 20191220
  Transmission Date: 20200122
  Serious: Yes (Other)
  Sender: FDA-Public Use
  Company Number: US-009507513-1912USA007963

PATIENT
  Sex: Female

DRUGS (4)
  1. SYNTHROID [Concomitant]
     Active Substance: LEVOTHYROXINE SODIUM
     Dosage: 125 UG, UNK
     Dates: start: 20050124
  2. CALCIUM D (CALCIUM CARBONATE (+) CALCIUM CITRATE (+) CHOLECALCIFEROL) [Concomitant]
     Dosage: 1000/400
     Dates: start: 20060302
  3. NASONEX [Suspect]
     Active Substance: MOMETASONE FUROATE
  4. ACTONEL [Suspect]
     Active Substance: RISEDRONATE SODIUM
     Dosage: 35 MG, ONCE WEEKLY
     Route: 048

REACTIONS (16)
  - Bone lesion [Not Recovered/Not Resolved]
  - Post procedural complication [Not Recovered/Not Resolved]
  - Salivary gland mucocoele [Recovering/Resolving]
  - Sinusitis aspergillus [Recovering/Resolving]
  - Rhinalgia [Unknown]
  - Paranasal sinus discomfort [Not Recovered/Not Resolved]
  - Ecchymosis [Unknown]
  - Pain [Recovering/Resolving]
  - Facial pain [Recovering/Resolving]
  - Disease progression [Unknown]
  - Osteonecrosis of jaw [Unknown]
  - Paranasal sinus discomfort [Not Recovered/Not Resolved]
  - Mastication disorder [Not Recovered/Not Resolved]
  - Bone erosion [Unknown]
  - Rhinorrhoea [Recovered/Resolved]
  - Nasal oedema [Unknown]

NARRATIVE: CASE EVENT DATE: 200508
